FAERS Safety Report 24071766 (Version 1)
Quarter: 2024Q3

REPORT INFORMATION
  Report Type: Report from Study
  Country: US (occurrence: US)
  Receive Date: 20240710
  Receipt Date: 20240710
  Transmission Date: 20241016
  Serious: No
  Sender: ROCHE
  Company Number: US-ROCHE-3564075

PATIENT
  Age: 50 Year
  Sex: Male
  Weight: 29.9 kg

DRUGS (1)
  1. EVRYSDI [Suspect]
     Active Substance: RISDIPLAM
     Indication: Spinal muscular atrophy
     Dosage: 6.6 ML
     Route: 048

REACTIONS (3)
  - Upper respiratory tract infection [Recovering/Resolving]
  - Frequent bowel movements [Unknown]
  - Motor dysfunction [Unknown]
